FAERS Safety Report 10071782 (Version 5)
Quarter: 2014Q2

REPORT INFORMATION
  Report Type: Spontaneous
  Country: US (occurrence: US)
  Receive Date: 20140411
  Receipt Date: 20140428
  Transmission Date: 20141212
  Serious: Yes (Death, Life-Threatening, Hospitalization)
  Sender: FDA-Public Use
  Company Number: US-JNJFOC-20140403825

PATIENT
  Age: 77 Year
  Sex: Male

DRUGS (4)
  1. XARELTO [Suspect]
     Indication: CEREBROVASCULAR ACCIDENT PROPHYLAXIS
     Route: 048
  2. XARELTO [Suspect]
     Indication: ATRIAL FIBRILLATION
     Route: 048
  3. ASPIRIN [Suspect]
     Indication: PRODUCT USED FOR UNKNOWN INDICATION
     Route: 065
  4. EFFIENT [Concomitant]
     Route: 065

REACTIONS (14)
  - Cardiac tamponade [Fatal]
  - Cardiac arrest [Unknown]
  - Encephalopathy [Not Recovered/Not Resolved]
  - Coma [Not Recovered/Not Resolved]
  - Renal failure [Unknown]
  - Renal tubular necrosis [Unknown]
  - Pneumonia [Unknown]
  - Atrial fibrillation [Unknown]
  - Ischaemic hepatitis [Unknown]
  - Respiratory distress [Unknown]
  - White blood cell count increased [Unknown]
  - Respiratory arrest [Unknown]
  - Blood lactic acid increased [Unknown]
  - Low density lipoprotein increased [Unknown]
